FAERS Safety Report 5027538-0 (Version None)
Quarter: 2006Q2

REPORT INFORMATION
  Report Type: 
  Country: None (occurrence: None)
  Receive Date: 20060616
  Receipt Date: 20060614
  Transmission Date: 20061013
  Serious: Yes (Life-Threatening, Other)
  Sender: FDA-Public Use
  Company Number: PHFR2006GB01970

PATIENT
  Age: 65 Year
  Sex: Female

DRUGS (15)
  1. TEGRETOL [Suspect]
     Indication: EPILEPSY
     Dosage: 200 MG, TID
     Route: 048
     Dates: start: 20020101
  2. ERYTHROMYCIN [Suspect]
     Indication: LOWER RESPIRATORY TRACT INFECTION
     Dosage: 250 MG, QID
     Route: 048
     Dates: start: 20060509, end: 20060514
  3. ASPIRIN [Concomitant]
     Dosage: 75 MG, QD
     Route: 065
  4. CLOPIXOL [Concomitant]
     Indication: SCHIZOPHRENIA
     Dosage: 300 MG, QW2
     Route: 030
  5. DICLOFENAC POTASSIUM [Concomitant]
     Dosage: 75 MG, BID
     Route: 048
     Dates: start: 20060509, end: 20060517
  6. FERROUS FUMARATE [Concomitant]
     Dosage: 210 MG, TID
     Route: 065
  7. FOLIC ACID [Concomitant]
     Dosage: 5 MG, QD
     Route: 065
  8. INDAPAMIDE [Concomitant]
     Dosage: 2.5 MG, QD
     Route: 065
  9. LANSOPRAZOLE [Concomitant]
     Indication: PROPHYLAXIS AGAINST GASTROINTESTINAL ULCER
     Dosage: 30 MG, QD
     Route: 048
     Dates: start: 20060510, end: 20060517
  10. LEVOTHYROXINE SODIUM [Concomitant]
     Indication: DEPRESSION
     Dosage: 50 UG, QD
     Route: 065
  11. MIRTAZAPINE [Concomitant]
     Indication: DEPRESSION
     Dosage: 15 MG, QD
     Route: 048
  12. PERINDOPRIL ERUMINE [Concomitant]
     Dosage: 2 MG, QD
  13. PROCYCLIDINE HYDROCHLORIDE 2MG TAB [Concomitant]
     Dosage: 5 MG, QD
     Route: 065
  14. SALBUTAMOL [Concomitant]
     Dosage: 2 / 1 DAY
     Route: 065
  15. SIMVASTATIN [Concomitant]
     Indication: BLOOD CHOLESTEROL INCREASED
     Dosage: 40 MG, QD
     Route: 048

REACTIONS (12)
  - ANTICONVULSANT DRUG LEVEL INCREASED [None]
  - CONFUSIONAL STATE [None]
  - DEPRESSION [None]
  - DRUG INTERACTION [None]
  - GLASGOW COMA SCALE ABNORMAL [None]
  - HYPERCHOLESTEROLAEMIA [None]
  - HYPOTENSION [None]
  - LOWER RESPIRATORY TRACT INFECTION [None]
  - MALAISE [None]
  - SCHIZOPHRENIA [None]
  - SOMNOLENCE [None]
  - VOMITING [None]
